FAERS Safety Report 9697050 (Version 2)
Quarter: 2015Q2

REPORT INFORMATION
  Report Type: Report from Study
  Country: US (occurrence: US)
  Receive Date: 20131120
  Receipt Date: 20150512
  Transmission Date: 20150821
  Serious: Yes (Death)
  Sender: FDA-Public Use
  Company Number: US-ROCHE-1305435

PATIENT
  Sex: Female
  Weight: 57.3 kg

DRUGS (14)
  1. AVASTIN [Suspect]
     Active Substance: BEVACIZUMAB
     Dosage: THERAPY RECEIVED DATES: 29/JUN/2010
     Route: 042
  2. MAGNESIUM OXIDE. [Concomitant]
     Active Substance: MAGNESIUM OXIDE
     Route: 048
  3. AVASTIN [Suspect]
     Active Substance: BEVACIZUMAB
     Indication: OVARIAN CANCER
     Dosage: THERAPY RECEIVED DATES: 15/DEC/2009
     Route: 042
     Dates: start: 20090417
  4. AVASTIN [Suspect]
     Active Substance: BEVACIZUMAB
     Dosage: THERAPY RECEIVED DATES: 20/JUL/2010, 10/AUG/2010, 07/SEP/2010
     Route: 042
  5. K-DUR [Concomitant]
     Active Substance: POTASSIUM CHLORIDE
     Route: 048
  6. AVASTIN [Suspect]
     Active Substance: BEVACIZUMAB
     Dosage: 01/SEP/2009, 22/SEP/2009, 13/OCT/2009
     Route: 042
  7. CLINDAMYCIN [Suspect]
     Active Substance: CLINDAMYCIN\CLINDAMYCIN PHOSPHATE
     Indication: CYST
  8. LEVOTHYROXINE [Concomitant]
     Active Substance: LEVOTHYROXINE
     Route: 048
  9. VITAMIN B12 [Concomitant]
     Active Substance: CYANOCOBALAMIN
     Route: 065
  10. KEFLEX [Concomitant]
     Active Substance: CEPHALEXIN
  11. CALCIUM CARBONATE. [Concomitant]
     Active Substance: CALCIUM CARBONATE
     Route: 048
  12. AVASTIN [Suspect]
     Active Substance: BEVACIZUMAB
     Dosage: THERAPY RECEIVED DATES: 15/DEC/2009, 03/NOV/2009, 15/DEC/2009, 15/JAN/2010, 26/JAN/2010, 02/APR/2010
     Route: 042
  13. AVASTIN [Suspect]
     Active Substance: BEVACIZUMAB
     Dosage: THERAPY RECEIVED DATES: 07/JUN/2010
     Route: 042
  14. CLINDAMYCIN [Suspect]
     Active Substance: CLINDAMYCIN\CLINDAMYCIN PHOSPHATE
     Indication: RASH
     Route: 065

REACTIONS (16)
  - Hypoaesthesia [Unknown]
  - Blood creatinine increased [Unknown]
  - Rash [Recovered/Resolved]
  - Paraesthesia [Unknown]
  - Tongue discolouration [Unknown]
  - Tongue disorder [Unknown]
  - Renal vein thrombosis [Unknown]
  - Cellulitis [Recovered/Resolved]
  - Product use issue [Unknown]
  - Rash maculo-papular [Unknown]
  - Dermal cyst [Unknown]
  - Onychomycosis [Recovered/Resolved]
  - Disease progression [Unknown]
  - Death [Fatal]
  - Diarrhoea [Unknown]
  - Fatigue [Unknown]
